FAERS Safety Report 12114701 (Version 2)
Quarter: 2016Q1

REPORT INFORMATION
  Report Type: Report from Study
  Country: US (occurrence: US)
  Receive Date: 20160225
  Receipt Date: 20160316
  Transmission Date: 20160526
  Serious: Yes (Hospitalization)
  Sender: FDA-Public Use
  Company Number: US-BAYER-2015-445403

PATIENT
  Age: 76 Year
  Sex: Female
  Weight: 56.69 kg

DRUGS (10)
  1. ADEMPAS [Suspect]
     Active Substance: RIOCIGUAT
     Indication: PULMONARY HYPERTENSION
     Dosage: UNK
     Dates: start: 20150930
  2. ADEMPAS [Suspect]
     Active Substance: RIOCIGUAT
     Indication: PULMONARY HYPERTENSION
     Dosage: 0.5 MG, TID
     Route: 048
  3. XARELTO [Suspect]
     Active Substance: RIVAROXABAN
  4. ADEMPAS [Suspect]
     Active Substance: RIOCIGUAT
     Indication: PULMONARY HYPERTENSION
     Dosage: 2.5 MG, TID
     Route: 048
  5. LETAIRIS [Concomitant]
     Active Substance: AMBRISENTAN
  6. ADEMPAS [Suspect]
     Active Substance: RIOCIGUAT
     Indication: PULMONARY HYPERTENSION
     Dosage: 1 MG, TID
     Route: 048
  7. SELEXIPAG [Suspect]
     Active Substance: SELEXIPAG
     Dosage: 400 MCG/24HR, UNK
  8. SELEXIPAG [Suspect]
     Active Substance: SELEXIPAG
     Dosage: 600 MCG/24HR, UNK
  9. ADEMPAS [Suspect]
     Active Substance: RIOCIGUAT
     Indication: PULMONARY HYPERTENSION
     Dosage: 1 MG, TID
     Route: 048
  10. ADEMPAS [Suspect]
     Active Substance: RIOCIGUAT
     Indication: PULMONARY HYPERTENSION
     Dosage: 1.5 MG, TID
     Route: 048

REACTIONS (13)
  - Hypoglycaemia [Unknown]
  - Dyspnoea exertional [Unknown]
  - Musculoskeletal pain [Recovered/Resolved]
  - Device related infection [Unknown]
  - Headache [None]
  - Neck pain [Recovered/Resolved]
  - Hospitalisation [Unknown]
  - Influenza like illness [None]
  - Malaise [Recovering/Resolving]
  - Headache [Recovered/Resolved]
  - Myalgia [None]
  - Back pain [Recovered/Resolved]
  - Pain in extremity [Recovered/Resolved]
